FAERS Safety Report 9571431 (Version 1)
Quarter: 2013Q3

REPORT INFORMATION
  Report Type: Spontaneous
  Country: US (occurrence: None)
  Receive Date: 20130927
  Receipt Date: 20130927
  Transmission Date: 20140515
  Serious: Yes (Life-Threatening, Disabling, Other)
  Sender: FDA-Public Use
  Company Number: None

PATIENT
  Age: 26 Year
  Sex: Female
  Weight: 72.58 kg

DRUGS (10)
  1. RISPERDAL [Suspect]
     Indication: BIPOLAR I DISORDER
     Dosage: 1 MG, 1-1MG TAB, Q12 H, P.O.
     Route: 048
     Dates: start: 20100310, end: 20111215
  2. RISPERDAL [Suspect]
     Indication: SCHIZOAFFECTIVE DISORDER
     Dosage: 1 MG, 1-1MG TAB, Q12 H, P.O.
     Route: 048
     Dates: start: 20100310, end: 20111215
  3. RISPERDAL [Suspect]
     Indication: ANXIETY
     Dosage: 1 MG, 1-1MG TAB, Q12 H, P.O.
     Route: 048
     Dates: start: 20100310, end: 20111215
  4. TEGRETOL [Concomitant]
  5. ATIVAN [Concomitant]
  6. KLONOPIN [Concomitant]
  7. INVEGA [Concomitant]
  8. MOTRIN [Concomitant]
  9. BENADRYL [Concomitant]
  10. VITAMIN D [Concomitant]

REACTIONS (3)
  - Dizziness [None]
  - Somnolence [None]
  - Dizziness [None]
